FAERS Safety Report 8488871-3 (Version None)
Quarter: 2012Q3

REPORT INFORMATION
  Report Type: 
  Country: None (occurrence: None)
  Receive Date: 20120705
  Receipt Date: 20120628
  Transmission Date: 20120928
  Serious: Yes (Hospitalization)
  Sender: FDA-Public Use
  Company Number: CO-ROCHE-1077185

PATIENT
  Sex: Male

DRUGS (1)
  1. CELLCEPT [Suspect]
     Indication: HEART TRANSPLANT
     Route: 048
     Dates: start: 20100202

REACTIONS (3)
  - ARTHRITIS BACTERIAL [None]
  - COUGH [None]
  - ODYNOPHAGIA [None]
